FAERS Safety Report 4608551-1 (Version None)
Quarter: 2005Q1

REPORT INFORMATION
  Report Type: 
  Country: None (occurrence: None)
  Receive Date: 20050315
  Receipt Date: 20041229
  Transmission Date: 20050727
  Serious: Yes (Other)
  Sender: FDA-Public Use
  Company Number: US-BRISTOL-MYERS SQUIBB COMPANY-12808713

PATIENT
  Age: 52 Year
  Sex: Female
  Weight: 111 kg

DRUGS (6)
  1. ABILIFY [Suspect]
     Indication: SCHIZOAFFECTIVE DISORDER
     Route: 048
  2. PRILOSEC [Concomitant]
  3. BENADRYL [Concomitant]
  4. VITAMIN E [Concomitant]
  5. CALCIUM GLUCONATE [Concomitant]
  6. MULTI-VITAMINS [Concomitant]

REACTIONS (7)
  - AGITATION [None]
  - FEELING ABNORMAL [None]
  - HALLUCINATION, AUDITORY [None]
  - NASAL CONGESTION [None]
  - SUICIDAL IDEATION [None]
  - THINKING ABNORMAL [None]
  - WEIGHT DECREASED [None]
